FAERS Safety Report 4554732-5 (Version None)
Quarter: 2004Q4

REPORT INFORMATION
  Report Type: 
  Country: None (occurrence: None)
  Receive Date: 20041227
  Receipt Date: 20041112
  Transmission Date: 20050328
  Serious: No
  Sender: FDA-Public Use
  Company Number: US099304

PATIENT
  Age: 72 Year
  Sex: Female

DRUGS (7)
  1. SENSIPAR [Suspect]
     Indication: HYPERPARATHYROIDISM SECONDARY
     Dosage: 30 MG, 1 IN 1 DAYS, PO
     Route: 048
     Dates: start: 20041015, end: 20041104
  2. EPOGEN [Concomitant]
  3. ALLOPURINOL [Concomitant]
  4. WARFARIN SODIUM [Concomitant]
  5. MONTELUKAST [Concomitant]
  6. PAROXETINE HYDROCHLORIDE [Concomitant]
  7. SEVELAMER HCL [Concomitant]

REACTIONS (3)
  - HYPERSENSITIVITY [None]
  - PRURITUS [None]
  - RASH GENERALISED [None]
